FAERS Safety Report 5356257-6 (Version None)
Quarter: 2007Q2

REPORT INFORMATION
  Report Type: 
  Country: None (occurrence: None)
  Receive Date: 20070612
  Receipt Date: 20070531
  Transmission Date: 20071010
  Serious: Yes (Hospitalization, Other)
  Sender: FDA-Public Use
  Company Number: US-PFIZER INC-2007046657

PATIENT
  Sex: Female
  Weight: 64.4 kg

DRUGS (3)
  1. CHANTIX [Suspect]
     Indication: EX-SMOKER
     Dates: start: 20070501, end: 20070501
  2. SPIRIVA [Interacting]
     Indication: EMPHYSEMA
     Dosage: FREQ:EVERY DAY
  3. ADVAIR DISKUS 100/50 [Interacting]
     Indication: EMPHYSEMA

REACTIONS (3)
  - DRUG INTERACTION [None]
  - DYSPNOEA [None]
  - RESPIRATORY DISTRESS [None]
